FAERS Safety Report 21314202 (Version 2)
Quarter: 2024Q3

REPORT INFORMATION
  Report Type: Spontaneous
  Country: US (occurrence: None)
  Receive Date: 20220909
  Receipt Date: 20240906
  Transmission Date: 20241016
  Serious: No
  Sender: DOMPE FARMACEUTICI
  Company Number: US-ARIS GLOBAL-202109-1658

PATIENT
  Age: 65 Year
  Sex: Female

DRUGS (14)
  1. OXERVATE [Suspect]
     Active Substance: CENEGERMIN-BKBJ
     Indication: Neurotrophic keratopathy
     Route: 047
     Dates: start: 20210908, end: 20211108
  2. OXERVATE [Suspect]
     Active Substance: CENEGERMIN-BKBJ
     Route: 047
     Dates: start: 20230110, end: 20230308
  3. OXERVATE [Suspect]
     Active Substance: CENEGERMIN-BKBJ
     Route: 047
     Dates: start: 20230925
  4. OXERVATE [Suspect]
     Active Substance: CENEGERMIN-BKBJ
  5. VITAMIN D3 [Concomitant]
     Active Substance: CHOLECALCIFEROL
  6. ACIPHEX [Concomitant]
     Active Substance: RABEPRAZOLE SODIUM
  7. ALLEGRA ALLERGY [Concomitant]
     Active Substance: FEXOFENADINE HYDROCHLORIDE
  8. MAGNESIUM [Concomitant]
     Active Substance: MAGNESIUM
  9. MELATONIN [Concomitant]
     Active Substance: MELATONIN
  10. RETAINE MGD [Concomitant]
     Active Substance: LIGHT MINERAL OIL\MINERAL OIL
     Dosage: 0.5%-0.5%
  11. OMEPRAZOLE [Concomitant]
     Active Substance: OMEPRAZOLE
  12. FAMOTIDINE [Concomitant]
     Active Substance: FAMOTIDINE
  13. ESTRADIOL [Concomitant]
     Active Substance: ESTRADIOL
  14. ESTRING [Concomitant]
     Active Substance: ESTRADIOL
     Dosage: 7.5 MCG / 24 HOUR VAGINAL RING

REACTIONS (8)
  - Eye swelling [Recovered/Resolved]
  - Eye inflammation [Unknown]
  - Sinus headache [Recovered/Resolved]
  - Intentional product misuse [Unknown]
  - Eye pain [Unknown]
  - Swelling of eyelid [Unknown]
  - Eyelid irritation [Unknown]
  - Product dose omission issue [Unknown]

NARRATIVE: CASE EVENT DATE: 20210909
